FAERS Safety Report 21166073 (Version 1)
Quarter: 2022Q3

REPORT INFORMATION
  Report Type: Spontaneous
  Country: US (occurrence: None)
  Receive Date: 20220802
  Receipt Date: 20220802
  Transmission Date: 20221026
  Serious: Yes (unspecified)
  Sender: FDA-Public Use
  Company Number: None

PATIENT
  Age: 45 Year
  Sex: Male
  Weight: 134.55 kg

DRUGS (1)
  1. OZEMPIC [Suspect]
     Active Substance: SEMAGLUTIDE
     Indication: Type 2 diabetes mellitus
     Dosage: OTHER QUANTITY : 1.5 INJECTION(S);?OTHER FREQUENCY : ONCE WEEKLY;?
     Route: 058

REACTIONS (5)
  - Diarrhoea [None]
  - Muscle spasms [None]
  - Vomiting [None]
  - Hypotension [None]
  - Abdominal tenderness [None]

NARRATIVE: CASE EVENT DATE: 20220730
